FAERS Safety Report 8818737 (Version 1)
Quarter: 2012Q4

REPORT INFORMATION
  Report Type: 
  Country: US (occurrence: US)
  Receive Date: 20121002
  Receipt Date: 20121002
  Transmission Date: 20130627
  Serious: Yes (Other)
  Sender: FDA-Public Use
  Company Number: US-COVIDIEN/TYCO HEALTHCARE/MALLINCKRODT-T201201049

PATIENT
  Age: 50 Year
  Sex: Male
  Weight: 92.06 kg

DRUGS (12)
  1. EXALGO EXTENDED RELEASE [Suspect]
     Indication: PAIN
     Dosage: 12 mg, qd
     Route: 048
     Dates: start: 20120309
  2. VICODIN [Concomitant]
     Indication: PAIN
     Dosage: 10/325 mg, tid, prn
     Dates: end: 20120308
  3. VALIUM                             /00017001/ [Concomitant]
     Dosage: UNK
  4. ZOLOFT [Concomitant]
     Indication: DEPRESSION
     Dosage: 100 mg, qd
     Route: 048
  5. AMITRIPTYLINE [Concomitant]
     Indication: NEURALGIA
     Dosage: 25 mg q am and 50 mg q pm
     Route: 048
  6. TRIAMTERENE/HCTZ [Concomitant]
     Dosage: 3.75/25 mg, qd
     Route: 048
  7. GEMFIBROZIL [Concomitant]
     Indication: BLOOD TRIGLYCERIDES INCREASED
     Dosage: 600 mg, bid
     Route: 048
  8. DOXYCYCLINE [Concomitant]
     Indication: GINGIVITIS
     Dosage: 20 mg, bid
     Route: 048
  9. FISH OIL [Concomitant]
     Indication: SUPPLEMENTATION THERAPY
     Dosage: 1 qd
     Route: 048
  10. VITAMIN D /00107901/ [Concomitant]
     Indication: SUPPLEMENTATION THERAPY
     Dosage: 1 qd
     Route: 048
  11. CALCIUM [Concomitant]
     Indication: SUPPLEMENTATION THERAPY
     Dosage: 1 qd
     Route: 048
  12. MULTIVITAMIN                       /00831701/ [Concomitant]
     Dosage: 1 qd
     Route: 048

REACTIONS (1)
  - Urinary hesitation [Not Recovered/Not Resolved]
